FAERS Safety Report 8515063-1 (Version None)
Quarter: 2012Q3

REPORT INFORMATION
  Report Type: 
  Country: None (occurrence: None)
  Receive Date: 20120717
  Receipt Date: 20120709
  Transmission Date: 20120928
  Serious: Yes (Hospitalization)
  Sender: FDA-Public Use
  Company Number: FR-009507513-1207FRA004835

PATIENT

DRUGS (8)
  1. AMLODIPINE BESYLATE [Suspect]
     Dosage: 35 MG, UNK
     Route: 048
     Dates: start: 20120611, end: 20120611
  2. LIPANOR [Suspect]
     Dosage: 700 MG, QD
     Route: 048
     Dates: start: 20120611, end: 20120611
  3. GLUCOPHAGE [Suspect]
     Dosage: 7 G, QD
     Route: 048
     Dates: start: 20120611, end: 20120611
  4. MINIPRESS [Suspect]
     Dosage: 25 MG, QD
     Route: 048
     Dates: start: 20120611, end: 20120611
  5. AMARYL [Suspect]
     Dosage: 28 MG, QD
     Route: 048
     Dates: start: 20120611, end: 20120611
  6. SITAGLIPTIN PHOSPHATE [Suspect]
     Dosage: 700 MG, QD
     Route: 048
     Dates: start: 20120611, end: 20120611
  7. ZOLOFT [Suspect]
     Dosage: 7 DF, QD
     Route: 048
     Dates: start: 20120611, end: 20120611
  8. ENALAPRIL MALEATE AND HYDROCHLOROTHIAZIDE [Suspect]
     Dosage: 7 DF, QD
     Route: 048
     Dates: start: 20120611, end: 20120611

REACTIONS (4)
  - TOXICITY TO VARIOUS AGENTS [None]
  - INTENTIONAL OVERDOSE [None]
  - METABOLIC ACIDOSIS [None]
  - HYPOGLYCAEMIA [None]
